FAERS Safety Report 4630437-7 (Version None)
Quarter: 2005Q2

REPORT INFORMATION
  Report Type: 
  Country: None (occurrence: None)
  Receive Date: 20050406
  Receipt Date: 20050324
  Transmission Date: 20051028
  Serious: Yes (Other)
  Sender: FDA-Public Use
  Company Number: 2005048938

PATIENT
  Age: 64 Year
  Sex: Female
  Weight: 53.5244 kg

DRUGS (2)
  1. SUDAFED COLD AND COUGH (PARACETAMOL, PSEUDOEPHEDRINE, DEXTROAMETHORPHA [Suspect]
     Indication: NASOPHARYNGITIS
     Dosage: 2 LIQUIDCAPS 3 TIMES ORAL
     Route: 048
     Dates: start: 20050302, end: 20050303
  2. RISEDRONATE SODIUM (RISEDRONATE SODIUM) [Concomitant]

REACTIONS (3)
  - ASTHENIA [None]
  - DEHYDRATION [None]
  - LOSS OF CONSCIOUSNESS [None]
